FAERS Safety Report 20995394 (Version 1)
Quarter: 2022Q2

REPORT INFORMATION
  Report Type: Spontaneous
  Country: US (occurrence: US)
  Receive Date: 20220622
  Receipt Date: 20220622
  Transmission Date: 20220721
  Serious: No
  Sender: FDA-Public Use
  Company Number: US-TAKEDA-2022TUS040542

PATIENT
  Sex: Female
  Weight: 48 kg

DRUGS (1)
  1. GAMMAGARD LIQUID [Suspect]
     Active Substance: HUMAN IMMUNOGLOBULIN G
     Indication: Autoimmune disorder
     Dosage: UNK, Q3WEEKS
     Route: 042
     Dates: start: 202110

REACTIONS (3)
  - Adverse drug reaction [Unknown]
  - Therapy interrupted [Unknown]
  - Insurance issue [Unknown]
